FAERS Safety Report 13994469 (Version 1)
Quarter: 2017Q3

REPORT INFORMATION
  Report Type: Spontaneous
  Country: GB (occurrence: GB)
  Receive Date: 20170920
  Receipt Date: 20170920
  Transmission Date: 20171128
  Serious: Yes (Life-Threatening, Hospitalization, Disabling, Congenital Anomaly, Other)
  Sender: FDA-Public Use
  Company Number: GB-MYLANLABS-2017M1057071

PATIENT
  Age: 88 Year
  Sex: Male
  Weight: 91 kg

DRUGS (19)
  1. DIETHYLAMINE SALICYLATE [Concomitant]
     Active Substance: DIETHYLAMINE SALICYLATE
     Dosage: APPLY AS DIRECTED
     Dates: start: 20051103, end: 20170809
  2. ZOPICLONE [Concomitant]
     Active Substance: ZOPICLONE
     Dosage: AT NIGHT.
     Dates: start: 20170707
  3. HYDROCORTISONE. [Concomitant]
     Active Substance: HYDROCORTISONE
     Dosage: THINLY ONCE OR TWICE A DAY.
     Dates: start: 20170707, end: 20170805
  4. ELIQUIS [Concomitant]
     Active Substance: APIXABAN
     Dosage: 1 DF, BID
     Dates: start: 20170814
  5. RISPERIDONE. [Concomitant]
     Active Substance: RISPERIDONE
     Dosage: ONE TO BE TAKEN TWICE A DAY AND AS REQUIRED UP ...
     Dates: start: 20170707
  6. DILTIAZEM HYDROCHLORIDE. [Concomitant]
     Active Substance: DILTIAZEM HYDROCHLORIDE
     Dosage: 1 DF, QD
     Dates: start: 20030407, end: 20170809
  7. NITROFURANTOIN. [Concomitant]
     Active Substance: NITROFURANTOIN
     Dosage: 1 DF, BID
     Dates: start: 20170815
  8. PARACETAMOL [Concomitant]
     Active Substance: ACETAMINOPHEN
     Dosage: ONE OR TWO TO BE TAKEN EVERY 4 TO 6 HOURS.
     Dates: start: 20161209
  9. ACETAMINOPHEN AND CODEINE [Concomitant]
     Active Substance: ACETAMINOPHEN\CODEINE PHOSPHATE
     Dosage: FOUR TIMES A DAY.
     Dates: start: 19980803, end: 20170809
  10. SIMVASTATIN. [Suspect]
     Active Substance: SIMVASTATIN
     Indication: PRODUCT USED FOR UNKNOWN INDICATION
     Dosage: UNK
     Dates: start: 20170816
  11. CHLORAMPHENICOL [Concomitant]
     Active Substance: CHLORAMPHENICOL
     Dosage: TO LEFT EYE.
     Dates: start: 20170707, end: 20170707
  12. COCODAMOL [Concomitant]
     Active Substance: ACETAMINOPHEN\CODEINE PHOSPHATE
     Dosage: TAKE 1 OR 2 4 TIMES/DAY.
     Dates: start: 20080310, end: 20170809
  13. DILTIAZEM. [Concomitant]
     Active Substance: DILTIAZEM
     Dosage: 1 DF, QD
     Dates: start: 20021224, end: 20170809
  14. LACTULOSE. [Concomitant]
     Active Substance: LACTULOSE
     Dosage: ONCE OR TWICE A DAY.
     Dates: start: 20170707
  15. SALBUTAMOL [Concomitant]
     Active Substance: ALBUTEROL
     Dosage: AS DIRECTED.
     Route: 055
     Dates: start: 20000612
  16. E45 [Concomitant]
     Active Substance: LANOLIN\LIGHT MINERAL OIL\PARAFFIN
     Dosage: TO THE AFFECTED AREA TWO OR THREE TIMES A..
     Dates: start: 20170707
  17. LANSOPRAZOLE. [Concomitant]
     Active Substance: LANSOPRAZOLE
     Dosage: 1 DF, QD
     Dates: start: 20080806, end: 20170809
  18. LORAZEPAM. [Concomitant]
     Active Substance: LORAZEPAM
     Dosage: EVERY FOUR HOURS PRN.
     Dates: start: 20170707
  19. SENNA [Concomitant]
     Active Substance: SENNA LEAF\SENNOSIDES\SENNOSIDES A AND B
     Dosage: AT NIGHT.
     Dates: start: 20170721

REACTIONS (1)
  - Drug hypersensitivity [Unknown]

NARRATIVE: CASE EVENT DATE: 20170816
